FAERS Safety Report 9208149 (Version 5)
Quarter: 2013Q4

REPORT INFORMATION
  Report Type: Report from Study
  Country: BR (occurrence: BR)
  Receive Date: 20130403
  Receipt Date: 20131227
  Transmission Date: 20140711
  Serious: Yes (Hospitalization, Other)
  Sender: FDA-Public Use
  Company Number: PHHY2013BR031011

PATIENT
  Age: 59 Year
  Sex: Male
  Weight: 111 kg

DRUGS (6)
  1. APRESOLIN [Suspect]
     Indication: HYPERTENSION
     Dosage: 25 MG, Q4H (12 TABLETS, 1 TABLET EVERY 4 HOURS)
     Route: 048
  2. APRESOLIN [Suspect]
     Dosage: 50 MG, Q8H
     Route: 048
  3. ENALAPRIL [Suspect]
     Dosage: 10 MG, UNK
  4. ATENOLOL [Suspect]
     Indication: HYPERTENSION
     Dosage: 100 MG, DAILY
     Route: 048
  5. NATRILIX [Suspect]
  6. OMEPRAZOLE [Concomitant]
     Indication: GASTRITIS
     Dosage: 2 DF, ORAL

REACTIONS (17)
  - Myocardial infarction [Recovered/Resolved]
  - Escherichia urinary tract infection [Recovered/Resolved]
  - Feeling cold [Recovered/Resolved]
  - Pyrexia [Recovered/Resolved]
  - Tuberculosis [Recovered/Resolved]
  - Cardiac disorder [Recovered/Resolved]
  - Cardiomegaly [Recovered/Resolved]
  - Diabetes mellitus [Not Recovered/Not Resolved]
  - Hypertension [Recovered/Resolved]
  - Headache [Recovered/Resolved]
  - Malaise [Recovered/Resolved]
  - Nausea [Recovered/Resolved]
  - Pallor [Recovered/Resolved]
  - Oral mucosal discolouration [Recovered/Resolved]
  - Asthenia [Recovered/Resolved]
  - Anxiety [Recovered/Resolved]
  - Blood pressure inadequately controlled [Not Recovered/Not Resolved]
